FAERS Safety Report 23696611 (Version 1)
Quarter: 2024Q2

REPORT INFORMATION
  Report Type: Spontaneous
  Country: US (occurrence: US)
  Receive Date: 20240402
  Receipt Date: 20240402
  Transmission Date: 20240715
  Serious: No
  Sender: FDA-Public Use
  Company Number: US-009507513-2403USA006841

PATIENT
  Age: 75 Year
  Sex: Female

DRUGS (8)
  1. VERQUVO [Suspect]
     Active Substance: VERICIGUAT
     Dosage: 2.5 MG, ONCE DAILY (QD)
     Route: 048
     Dates: start: 20231212
  2. COREG [Concomitant]
     Active Substance: CARVEDILOL
  3. JARDIANCE [Concomitant]
     Active Substance: EMPAGLIFLOZIN
  4. ENTRESTO [Concomitant]
     Active Substance: SACUBITRIL\VALSARTAN
  5. ALDACTONE [Concomitant]
     Active Substance: SPIRONOLACTONE
  6. BUMEX [Concomitant]
     Active Substance: BUMETANIDE
  7. MORPHINE [Concomitant]
     Active Substance: MORPHINE
  8. MAGNESIUM [Concomitant]
     Active Substance: MAGNESIUM

REACTIONS (1)
  - Palpitations [Unknown]
